FAERS Safety Report 9649706 (Version 3)
Quarter: 2013Q4

REPORT INFORMATION
  Report Type: Spontaneous
  Country: CH (occurrence: CH)
  Receive Date: 20131028
  Receipt Date: 20131204
  Transmission Date: 20140711
  Serious: Yes (Other)
  Sender: FDA-Public Use
  Company Number: PHHY2013CH105431

PATIENT
  Age: 45 Year
  Sex: Female

DRUGS (1)
  1. ECOFENAC CR [Suspect]
     Indication: EPICONDYLITIS
     Dosage: 75 MG, BID
     Route: 048
     Dates: start: 20130916, end: 20130916

REACTIONS (4)
  - Agitation [Recovered/Resolved]
  - Sleep disorder [Recovered/Resolved]
  - Diarrhoea [Recovered/Resolved]
  - Nausea [Recovered/Resolved]
